FAERS Safety Report 23235514 (Version 1)
Quarter: 2023Q4

REPORT INFORMATION
  Report Type: Spontaneous
  Country: US (occurrence: US)
  Receive Date: 20231128
  Receipt Date: 20231128
  Transmission Date: 20240110
  Serious: No
  Sender: FDA-Public Use
  Company Number: US-PFIZER INC-202300370171

PATIENT
  Sex: Female

DRUGS (1)
  1. PAXLOVID [Suspect]
     Active Substance: NIRMATRELVIR\RITONAVIR
     Indication: COVID-19 treatment
     Dosage: UNK
     Dates: start: 2023, end: 2023

REACTIONS (6)
  - Abdominal pain upper [Unknown]
  - Faeces soft [Unknown]
  - Malaise [Unknown]
  - Dysgeusia [Unknown]
  - Upper-airway cough syndrome [Unknown]
  - Oropharyngeal pain [Unknown]
